FAERS Safety Report 17861174 (Version 1)
Quarter: 2020Q2

REPORT INFORMATION
  Report Type: Spontaneous
  Country: CA (occurrence: CA)
  Receive Date: 20200604
  Receipt Date: 20200604
  Transmission Date: 20200714
  Serious: Yes (Death, Hospitalization, Other)
  Sender: FDA-Public Use
  Company Number: CA-PFIZER INC-2020215166

PATIENT
  Age: 55 Year
  Sex: Male
  Weight: 114 kg

DRUGS (9)
  1. ACETYLSALICYLIC ACID [Concomitant]
     Active Substance: ASPIRIN
     Indication: DEEP VEIN THROMBOSIS
     Dosage: 81 MG, DAILY (ON POD4)
     Route: 048
  2. RIVAROXABAN [Concomitant]
     Active Substance: RIVAROXABAN
     Indication: DEEP VEIN THROMBOSIS
     Dosage: 15 MG, 2X/DAY
     Route: 048
  3. RIVAROXABAN [Concomitant]
     Active Substance: RIVAROXABAN
     Indication: GANGRENE
  4. HEPARIN SODIUM. [Suspect]
     Active Substance: HEPARIN SODIUM
     Dosage: UNK (THERAPEUTIC-DOSE HEPARIN INFUSION, APPROXIMATELY 72 HOURS OF POST-SURGERY)
  5. HEPARIN SODIUM. [Suspect]
     Active Substance: HEPARIN SODIUM
     Dosage: 2050 IU (HEPARIN INFUSION AT 2050 U/HOUR)
  6. HEPARIN SODIUM. [Suspect]
     Active Substance: HEPARIN SODIUM
     Indication: DEEP VEIN THROMBOSIS
     Dosage: 16000 IU (DURING THE INITIAL VASCULAR SURGERY)
     Route: 042
  7. HEPARIN SODIUM. [Suspect]
     Active Substance: HEPARIN SODIUM
     Indication: GANGRENE
     Dosage: 13000 UNK (FOR THE REVISION)
     Route: 042
  8. ACETYLSALICYLIC ACID [Concomitant]
     Active Substance: ASPIRIN
     Indication: GANGRENE
  9. HEPARIN SODIUM. [Suspect]
     Active Substance: HEPARIN SODIUM
     Dosage: 80 IU/KG ((9100 U FOR 114 KG PATIENT WEIGHT)
     Route: 040

REACTIONS (4)
  - Pulseless electrical activity [Fatal]
  - Heparin-induced thrombocytopenia [Unknown]
  - Gangrene [Unknown]
  - Anaphylactoid reaction [Fatal]
